FAERS Safety Report 5565408-X (Version None)
Quarter: 2007Q4

REPORT INFORMATION
  Report Type: 
  Country: None (occurrence: None)
  Receive Date: 20071218
  Receipt Date: 20071207
  Transmission Date: 20080405
  Serious: Yes (Other)
  Sender: FDA-Public Use
  Company Number: CA-ELI_LILLY_AND_COMPANY-CA200711000577

PATIENT
  Age: 14 Year
  Sex: Male
  Weight: 57 kg

DRUGS (4)
  1. STRATTERA [Suspect]
     Indication: ATTENTION DEFICIT/HYPERACTIVITY DISORDER
     Dosage: 25 MG, UNK
     Dates: start: 20061101, end: 20070101
  2. STRATTERA [Suspect]
     Dosage: 40 MG, UNK
     Dates: start: 20070122, end: 20070401
  3. STRATTERA [Suspect]
     Dosage: 25 MG, UNK
     Dates: start: 20070424, end: 20070601
  4. CELEXA [Concomitant]
     Indication: ANXIETY
     Dosage: 40 MG, UNK
     Dates: start: 20061220, end: 20070701

REACTIONS (7)
  - COGNITIVE DISORDER [None]
  - HALLUCINATION, AUDITORY [None]
  - HALLUCINATION, VISUAL [None]
  - HOMICIDAL IDEATION [None]
  - INSOMNIA [None]
  - PHOBIA [None]
  - SOCIAL AVOIDANT BEHAVIOUR [None]
